FAERS Safety Report 5834004-9 (Version None)
Quarter: 2008Q3

REPORT INFORMATION
  Report Type: 
  Country: None (occurrence: None)
  Receive Date: 20080731
  Receipt Date: 20080716
  Transmission Date: 20090109
  Serious: Yes (Death)
  Sender: FDA-Public Use
  Company Number: 2008AL008666

PATIENT
  Age: 90 Year
  Sex: Female

DRUGS (10)
  1. DIGOXIN [Suspect]
     Dosage: 0.125MG QOD PO
     Route: 048
     Dates: start: 20070912, end: 20080122
  2. DIGOXIN [Suspect]
     Dosage: 0.125MG QOD PO
     Route: 048
     Dates: start: 20080123, end: 20080207
  3. CELEXA [Concomitant]
  4. COLCHICINE [Concomitant]
  5. ALLOPURINOL [Concomitant]
  6. WARFARIN SODIUM [Concomitant]
  7. FUROSEMIDE [Concomitant]
  8. NEPHROCAPS [Concomitant]
  9. DARVON [Concomitant]
  10. TRAMADOL HCL [Concomitant]

REACTIONS (4)
  - DRUG INEFFECTIVE [None]
  - HEART RATE DECREASED [None]
  - SINGLE FUNCTIONAL KIDNEY [None]
  - TONGUE BITING [None]
